FAERS Safety Report 9976168 (Version 1)
Quarter: 2014Q1

REPORT INFORMATION
  Report Type: Spontaneous
  Country: US (occurrence: US)
  Receive Date: 20140306
  Receipt Date: 20140306
  Transmission Date: 20141002
  Serious: Yes (Other)
  Sender: FDA-Public Use
  Company Number: ALCN2014US001389

PATIENT
  Age: 87 Year
  Sex: Female

DRUGS (5)
  1. PREDNISOLONE ACETATE [Suspect]
     Indication: CATARACT OPERATION
     Dosage: 1 GTT, Q2H
     Route: 047
     Dates: start: 201401
  2. PREDNISOLONE ACETATE [Suspect]
     Dosage: 1 GTT, TID
     Route: 047
     Dates: start: 201402
  3. PREDNISOLONE ACETATE [Suspect]
     Dosage: 1 GTT, 6X A DAY
     Route: 047
     Dates: start: 201402
  4. LUMIGAN [Concomitant]
     Dosage: 1 GTT, QD
     Route: 047
  5. COSOPT [Concomitant]
     Dosage: 1 GTT, QD
     Route: 047

REACTIONS (3)
  - Intraocular pressure decreased [Not Recovered/Not Resolved]
  - Eye pain [Not Recovered/Not Resolved]
  - Headache [Not Recovered/Not Resolved]
